FAERS Safety Report 15751206 (Version 1)
Quarter: 2018Q4

REPORT INFORMATION
  Report Type: Report from Study
  Country: US (occurrence: US)
  Receive Date: 20181221
  Receipt Date: 20181221
  Transmission Date: 20190205
  Serious: Yes (Death, Hospitalization, Other)
  Sender: FDA-Public Use
  Company Number: US-BAYER-2018-039087

PATIENT
  Age: 74 Year
  Sex: Male
  Weight: 97.7 kg

DRUGS (23)
  1. XOFIGO [Suspect]
     Active Substance: RADIUM RA-223 DICHLORIDE
     Indication: HORMONE-REFRACTORY PROSTATE CANCER
     Dosage: 145.7 ?CI, Q4WK
     Route: 042
     Dates: start: 20180125, end: 20180125
  2. CASODEX [Concomitant]
     Active Substance: BICALUTAMIDE
  3. XOFIGO [Suspect]
     Active Substance: RADIUM RA-223 DICHLORIDE
     Indication: METASTASES TO BONE
     Dosage: 137 MICROCURIES WAS INFUSED OVER 1 MINUTE AND FOLLOWED WITH A SALINE FLUSH
     Dates: start: 20180323, end: 20180323
  4. AMBIEN [Concomitant]
     Active Substance: ZOLPIDEM TARTRATE
     Dosage: 5 MG AT BEDTIME AS NEEDED FOR SLEEP
  5. SALINE [SODIUM CHLORIDE] [Concomitant]
     Active Substance: SODIUM CHLORIDE
  6. PROCHLORPERAZINE MALEATE. [Concomitant]
     Active Substance: PROCHLORPERAZINE MALEATE
     Indication: NAUSEA
     Dosage: 10 MG, QID
     Route: 048
     Dates: start: 20180130
  7. PRAVASTATIN. [Concomitant]
     Active Substance: PRAVASTATIN
  8. HYDROCODONE W/ACETAMINOPHEN [Concomitant]
     Active Substance: ACETAMINOPHEN\HYDROCODONE BITARTRATE
     Dosage: UNK
     Dates: start: 20180425
  9. OMEPRAZOLE. [Concomitant]
     Active Substance: OMEPRAZOLE
     Dosage: 20 MG DAILY
  10. CABAZITAXEL [Concomitant]
     Active Substance: CABAZITAXEL
  11. BACLOFEN. [Concomitant]
     Active Substance: BACLOFEN
     Dosage: 10 MG AT BEDTIME FOR 30 DAYS
  12. AUGMENTIN [Concomitant]
     Active Substance: AMOXICILLIN\CLAVULANATE POTASSIUM
     Dosage: 875 MG, BID FO R 5 DAYS
  13. ASPIRIN [ACETYLSALICYLIC ACID] [Concomitant]
     Active Substance: ASPIRIN
     Dosage: UNK
  14. LEUPROLIDE ACETATE. [Concomitant]
     Active Substance: LEUPROLIDE ACETATE
     Route: 030
  15. ONDANSETRON [Concomitant]
     Active Substance: ONDANSETRON
     Indication: NAUSEA
     Dosage: 8 MG, QID
     Route: 048
     Dates: start: 20180215
  16. LASIX [Concomitant]
     Active Substance: FUROSEMIDE
  17. XOFIGO [Suspect]
     Active Substance: RADIUM RA-223 DICHLORIDE
     Indication: HORMONE-REFRACTORY PROSTATE CANCER
     Dosage: 140 MICROCURIES 137 MICROCURIES WAS INFUSED OVER 1 MINUTE AND FOLLOWED WITH A SALINE FLUSH
     Route: 042
     Dates: start: 20180425, end: 20180425
  18. DENOSUMAB [Concomitant]
     Active Substance: DENOSUMAB
     Route: 058
  19. LUPRON [Concomitant]
     Active Substance: LEUPROLIDE ACETATE
  20. BACLOFEN. [Concomitant]
     Active Substance: BACLOFEN
  21. PREDNISONE. [Concomitant]
     Active Substance: PREDNISONE
     Dosage: 5 MG, BID
     Route: 048
     Dates: start: 20170727
  22. LASIX [Concomitant]
     Active Substance: FUROSEMIDE
     Dosage: 40 MG, BID
  23. VENLAFAXINE [Concomitant]
     Active Substance: VENLAFAXINE HYDROCHLORIDE
     Dosage: 75 MG DAILY

REACTIONS (47)
  - Metastases to lymph nodes [None]
  - Cystitis [None]
  - Pleural effusion [None]
  - Myelodysplastic syndrome [None]
  - Lung infection [None]
  - Dyspnoea [None]
  - Dizziness [Not Recovered/Not Resolved]
  - Nausea [Not Recovered/Not Resolved]
  - Hormone-refractory prostate cancer [Fatal]
  - Hormone-refractory prostate cancer [Not Recovered/Not Resolved]
  - Pituitary tumour benign [Recovered/Resolved]
  - Hyponatraemia [Not Recovered/Not Resolved]
  - Hypoalbuminaemia [None]
  - Acute respiratory failure [None]
  - Hypokalaemia [None]
  - Diarrhoea [None]
  - Pancytopenia [None]
  - Platelet count decreased [None]
  - Malnutrition [None]
  - Asthenia [Not Recovered/Not Resolved]
  - Chest X-ray abnormal [None]
  - Gastrointestinal disorder [Recovering/Resolving]
  - Malaise [Not Recovered/Not Resolved]
  - Neutropenia [Not Recovered/Not Resolved]
  - Prostatic specific antigen increased [Not Recovered/Not Resolved]
  - Pain [None]
  - Anaemia [Not Recovered/Not Resolved]
  - Asthenia [None]
  - Palliative care [None]
  - Pulmonary oedema [None]
  - Fatigue [None]
  - Feeling abnormal [Recovering/Resolving]
  - Pain in extremity [None]
  - Blood alkaline phosphatase increased [Not Recovered/Not Resolved]
  - Drug ineffective [None]
  - Adrenal insufficiency [Recovering/Resolving]
  - Bone marrow tumour cell infiltration [Fatal]
  - Pneumonia [None]
  - Asthenia [None]
  - Hypoxia [None]
  - Tachypnoea [None]
  - Thrombocytopenia [None]
  - Pain in extremity [None]
  - Hypotension [Not Recovered/Not Resolved]
  - Prostate cancer stage IV [None]
  - Leukopenia [None]
  - Vomiting [Recovered/Resolved]

NARRATIVE: CASE EVENT DATE: 2018
